FAERS Safety Report 9034743 (Version 1)
Quarter: 2013Q1

REPORT INFORMATION
  Report Type: Spontaneous
  Country: US (occurrence: None)
  Receive Date: 20130116
  Receipt Date: 20130116
  Transmission Date: 20140127
  Serious: Yes (Other)
  Sender: FDA-Public Use
  Company Number: None

PATIENT
  Sex: Female
  Weight: 90.72 kg

DRUGS (1)
  1. CITALOPRAM 40 MG [Suspect]
     Dosage: 40MG DAILY

REACTIONS (7)
  - Dry mouth [None]
  - Constipation [None]
  - Lacrimation increased [None]
  - Respiratory tract infection [None]
  - Sinusitis [None]
  - Pneumonia [None]
  - Bronchitis [None]
